FAERS Safety Report 20055032 (Version 1)
Quarter: 2021Q4

REPORT INFORMATION
  Report Type: Spontaneous
  Country: None (occurrence: A1)
  Receive Date: 20211110
  Receipt Date: 20211110
  Transmission Date: 20220303
  Serious: Yes (Hospitalization, Other)
  Sender: FDA-Public Use
  Company Number: A1-Avion Pharmaceuticals, LLC-2121712

PATIENT
  Age: 48 Year
  Sex: Male

DRUGS (4)
  1. GLOPERBA [Suspect]
     Active Substance: COLCHICINE
     Indication: Polyarthritis
     Route: 065
  2. ACETAMINOPHEN [Suspect]
     Active Substance: ACETAMINOPHEN
     Route: 065
  3. IBUPROFEN [Suspect]
     Active Substance: IBUPROFEN
     Route: 065
  4. KETOPROFEN EXTENDED-RELEASE [Suspect]
     Active Substance: KETOPROFEN
     Route: 065

REACTIONS (11)
  - Diarrhoea [Unknown]
  - Vomiting [Unknown]
  - Hepatic function abnormal [Unknown]
  - Acute hepatic failure [Unknown]
  - Metabolic acidosis [Unknown]
  - Thrombocytopenia [Unknown]
  - Leukopenia [Unknown]
  - Anaemia [Unknown]
  - Respiratory failure [Unknown]
  - Haemodialysis [Unknown]
  - Alopecia [Unknown]
